FAERS Safety Report 11721430 (Version 1)
Quarter: 2015Q4

REPORT INFORMATION
  Report Type: Spontaneous
  Country: SE (occurrence: None)
  Receive Date: 20151109
  Receipt Date: 20151109
  Transmission Date: 20160304
  Serious: No
  Sender: FDA-Public Use
  Company Number: 1510SWE015017

PATIENT
  Sex: Male

DRUGS (3)
  1. CEDAX [Suspect]
     Active Substance: CEFTIBUTEN DIHYDRATE
     Indication: INFECTION
     Route: 048
     Dates: start: 20151026
  2. OMEPRAZOLE. [Concomitant]
     Active Substance: OMEPRAZOLE
  3. CEDAX [Suspect]
     Active Substance: CEFTIBUTEN DIHYDRATE
     Indication: INFECTION
     Route: 042
     Dates: start: 201510, end: 20151025

REACTIONS (3)
  - Paraesthesia [None]
  - Dizziness [None]
  - Fatigue [None]

NARRATIVE: CASE EVENT DATE: 201510
